FAERS Safety Report 7677709-X (Version None)
Quarter: 2011Q3

REPORT INFORMATION
  Report Type: 
  Country: None (occurrence: None)
  Receive Date: 20110811
  Receipt Date: 20110804
  Transmission Date: 20111222
  Serious: Yes (Other)
  Sender: FDA-Public Use
  Company Number: PHHY2010US56445

PATIENT
  Sex: Female

DRUGS (1)
  1. RECLAST [Suspect]
     Dosage: 5 MG,
     Route: 042
     Dates: start: 20100802

REACTIONS (3)
  - CYSTITIS [None]
  - HEADACHE [None]
  - BLOOD URINE PRESENT [None]
